FAERS Safety Report 13580639 (Version 1)
Quarter: 2017Q2

REPORT INFORMATION
  Report Type: Other
  Country: AU (occurrence: AU)
  Receive Date: 20170525
  Receipt Date: 20170525
  Transmission Date: 20170830
  Serious: Yes (Life-Threatening)
  Sender: FDA-Public Use
  Company Number: AU-ORCHID HEALTHCARE-2021194

PATIENT
  Age: 15 Year
  Sex: Male
  Weight: 70 kg

DRUGS (8)
  1. VENLAFAXINE HYDROCHLORIDE. [Suspect]
     Active Substance: VENLAFAXINE HYDROCHLORIDE
     Route: 065
  2. PROMETHAZINE [Suspect]
     Active Substance: PROMETHAZINE\PROMETHAZINE HYDROCHLORIDE
     Route: 065
  3. AMLODIPINE BESYLATE. [Suspect]
     Active Substance: AMLODIPINE BESYLATE
     Route: 065
  4. QUETIAPINE FUMARATE. [Suspect]
     Active Substance: QUETIAPINE FUMARATE
     Route: 065
  5. DESVENLAFAXINE. [Suspect]
     Active Substance: DESVENLAFAXINE
     Route: 065
  6. RAMIPRIL. [Suspect]
     Active Substance: RAMIPRIL
     Route: 065
  7. FLUOXETINE [Suspect]
     Active Substance: FLUOXETINE HYDROCHLORIDE
     Route: 065
  8. LITHIUM. [Suspect]
     Active Substance: LITHIUM
     Route: 065

REACTIONS (8)
  - Shock [Recovered/Resolved]
  - Coma scale abnormal [Recovered/Resolved]
  - Serotonin syndrome [Recovered/Resolved]
  - Blood pressure systolic decreased [Recovered/Resolved]
  - Overdose [Recovered/Resolved]
  - Paralysis [Recovered/Resolved]
  - Pneumonia [Recovered/Resolved]
  - Heart rate increased [Recovered/Resolved]
